FAERS Safety Report 7595949-5 (Version None)
Quarter: 2011Q3

REPORT INFORMATION
  Report Type: 
  Country: None (occurrence: None)
  Receive Date: 20110707
  Receipt Date: 20110624
  Transmission Date: 20111222
  Serious: Yes (Hospitalization)
  Sender: FDA-Public Use
  Company Number: PHHY2011DE56673

PATIENT
  Age: 17 Year
  Sex: Male
  Weight: 60 kg

DRUGS (2)
  1. VALPROIC ACID [Concomitant]
  2. OXCARBAZEPINE [Suspect]
     Indication: CONVULSION
     Dosage: UNK UKN, UNK
     Dates: start: 20101224

REACTIONS (10)
  - HYPOCHLORAEMIA [None]
  - BLISTER [None]
  - SWELLING FACE [None]
  - PYREXIA [None]
  - HYPERGLYCAEMIA [None]
  - RASH MACULO-PAPULAR [None]
  - LEUKOPENIA [None]
  - STEVENS-JOHNSON SYNDROME [None]
  - THROMBOCYTOPENIA [None]
  - HYPONATRAEMIA [None]
